FAERS Safety Report 7377524-0 (Version None)
Quarter: 2011Q1

REPORT INFORMATION
  Report Type: 
  Country: None (occurrence: None)
  Receive Date: 20110328
  Receipt Date: 20110321
  Transmission Date: 20110831
  Serious: Yes (Hospitalization, Other)
  Sender: FDA-Public Use
  Company Number: US-ASTRAZENECA-2006UW11443

PATIENT
  Age: 518 Month
  Sex: Male
  Weight: 129.3 kg

DRUGS (9)
  1. SEROQUEL [Suspect]
     Indication: BIPOLAR DISORDER
     Route: 048
     Dates: start: 20050101
  2. ACTOS [Concomitant]
     Dates: start: 20051017
  3. SEROQUEL [Suspect]
     Indication: DEPRESSION
     Route: 048
     Dates: start: 20050101
  4. SEROQUEL [Suspect]
     Route: 048
     Dates: start: 20050712
  5. ZOLOFT [Concomitant]
     Dates: start: 20050311
  6. SEROQUEL [Suspect]
     Dosage: 25 MG AT BEDTIME FOR FIVE NIGHTS, 50MG AT BEDTIME FOR FIVE NIGHTS,THEN 50MG TWICE A DAY, 200MG DAILY
     Route: 048
     Dates: start: 20050712, end: 20051017
  7. SEROQUEL [Suspect]
     Dosage: 25 MG AT BEDTIME FOR FIVE NIGHTS, 50MG AT BEDTIME FOR FIVE NIGHTS,THEN 50MG TWICE A DAY, 200MG DAILY
     Route: 048
     Dates: start: 20050712, end: 20051017
  8. RISPERDAL [Concomitant]
  9. SEROQUEL [Suspect]
     Route: 048
     Dates: start: 20050712

REACTIONS (12)
  - CHEST PAIN [None]
  - MYOCARDIAL INFARCTION [None]
  - THROMBOSIS [None]
  - FATIGUE [None]
  - DYSPNOEA [None]
  - LIMB INJURY [None]
  - PAIN IN EXTREMITY [None]
  - INFECTION [None]
  - CORONARY ARTERY DISEASE [None]
  - DIABETES MELLITUS [None]
  - DIABETES MELLITUS INADEQUATE CONTROL [None]
  - DRUG HYPERSENSITIVITY [None]
